FAERS Safety Report 10795335 (Version 1)
Quarter: 2015Q1

REPORT INFORMATION
  Report Type: Spontaneous
  Country: US (occurrence: US)
  Receive Date: 20150214
  Receipt Date: 20150214
  Transmission Date: 20150721
  Serious: No
  Sender: FDA-Public Use
  Company Number: US-GLAXOSMITHKLINE-A1063703A

PATIENT

DRUGS (1)
  1. WALGREEN NICOTINE [Suspect]
     Active Substance: NICOTINE
     Indication: EX-TOBACCO USER
     Dates: start: 201402, end: 201403

REACTIONS (8)
  - Application site erythema [Unknown]
  - Application site pruritus [Unknown]
  - Hypersensitivity [Unknown]
  - Application site paraesthesia [Recovered/Resolved]
  - Application site reaction [Unknown]
  - Application site irritation [Unknown]
  - Scratch [Unknown]
  - Drug administration error [Unknown]

NARRATIVE: CASE EVENT DATE: 201402
